FAERS Safety Report 26167602 (Version 1)
Quarter: 2025Q4

REPORT INFORMATION
  Report Type: Spontaneous
  Country: CN (occurrence: CN)
  Receive Date: 20251217
  Receipt Date: 20251217
  Transmission Date: 20260118
  Serious: Yes (Other)
  Sender: BAXTER
  Company Number: None

PATIENT
  Age: 37 Year
  Sex: Female
  Weight: 68 kg

DRUGS (4)
  1. CYCLOPHOSPHAMIDE [Suspect]
     Active Substance: CYCLOPHOSPHAMIDE
     Indication: Breast cancer female
     Dosage: 1 G, QD (WITH 0.9% SODIUM CHLORIDE INJECTION 50ML IVGTT), D1
     Route: 041
     Dates: start: 20251111, end: 20251111
  2. SODIUM CHLORIDE [Suspect]
     Active Substance: SODIUM CHLORIDE
     Indication: Medication dilution
     Dosage: 50 ML, QD (WITH CYCLOPHOSPHAMIDE IVGTT), D1
     Route: 041
     Dates: start: 20251111, end: 20251111
  3. DEXTROSE [Suspect]
     Active Substance: DEXTROSE MONOHYDRATE
     Indication: Medication dilution
     Dosage: 500 ML, QD (WITH DOXORUBICIN HYDROCHLORIDE LIPOSOME, IVGTT), D1
     Route: 041
     Dates: start: 20251111, end: 20251111
  4. DOXORUBICIN HYDROCHLORIDE [Suspect]
     Active Substance: DOXORUBICIN HYDROCHLORIDE
     Indication: Breast cancer female
     Dosage: 55 MG, QD (PREPARED BY SELF), (WITH 5% GLUCOSE INJECTION 500ML IVGTT), D1
     Route: 041
     Dates: start: 20251111, end: 20251111

REACTIONS (1)
  - Leukopenia [Unknown]

NARRATIVE: CASE EVENT DATE: 20251201
